FAERS Safety Report 22398368 (Version 1)
Quarter: 2023Q2

REPORT INFORMATION
  Report Type: Spontaneous
  Country: DE (occurrence: DE)
  Receive Date: 20230602
  Receipt Date: 20230602
  Transmission Date: 20230722
  Serious: Yes (Other)
  Sender: FDA-Public Use
  Company Number: DE-ASTELLAS-2023US010425

PATIENT
  Age: 75 Year
  Sex: Male

DRUGS (2)
  1. XTANDI [Suspect]
     Active Substance: ENZALUTAMIDE
     Indication: Prostate cancer
     Dosage: 80 MG, TWICE DAILY (TWO 40 MG TABLETS IN THE MORNING AND TWO 40 MG TABLETS IN THE EVENING DAILY)
     Route: 048
     Dates: start: 20220928
  2. XTANDI [Suspect]
     Active Substance: ENZALUTAMIDE
     Dosage: 80 MG, ONCE DAILY (TWO IN THE MORNING , 2-0-0)
     Route: 048
     Dates: start: 20221025, end: 20230328

REACTIONS (5)
  - Hyperthyroidism [Unknown]
  - Decreased appetite [Unknown]
  - Prostatic specific antigen increased [Unknown]
  - Product residue present [Unknown]
  - Off label use [Unknown]
